FAERS Safety Report 10684828 (Version 1)
Quarter: 2014Q4

REPORT INFORMATION
  Report Type: Spontaneous
  Country: US (occurrence: None)
  Receive Date: 20141210
  Receipt Date: 20141210
  Transmission Date: 20150529
  Serious: Yes (Hospitalization)
  Sender: FDA-Public Use
  Company Number: US201402985

PATIENT
  Age: 23 Year
  Sex: Female
  Weight: 95.2 kg

DRUGS (7)
  1. DEXAMETHASONE. [Concomitant]
     Active Substance: DEXAMETHASONE
  2. BENADRYL [Concomitant]
     Active Substance: DIPHENHYDRAMINE HYDROCHLORIDE
  3. CINRYZE [Suspect]
     Active Substance: HUMAN C1-ESTERASE INHIBITOR
     Indication: HEREDITARY ANGIOEDEMA
     Dosage: 1000 UNITS, OTHER (EVERY 3 DAYS), INTRAVENOUS
     Route: 042
     Dates: start: 20131216
  4. MAGNESIUM [Concomitant]
     Active Substance: MAGNESIUM
  5. CINRYZE [Suspect]
     Active Substance: HUMAN C1-ESTERASE INHIBITOR
     Indication: PROPHYLAXIS
     Dosage: 1000 UNITS, OTHER (EVERY 3 DAYS), INTRAVENOUS
     Route: 042
     Dates: start: 20131216
  6. OTHER THERAPEUTIC PRODUCTS [Concomitant]
     Active Substance: UNSPECIFIED INGREDIENT
  7. SYNTHROID [Concomitant]
     Active Substance: LEVOTHYROXINE SODIUM

REACTIONS (4)
  - Gestational diabetes [None]
  - Maternal exposure during pregnancy [None]
  - Wrong technique in drug usage process [None]
  - Hereditary angioedema [None]

NARRATIVE: CASE EVENT DATE: 2014
